FAERS Safety Report 10077700 (Version 1)
Quarter: 2014Q2

REPORT INFORMATION
  Report Type: Report from Study
  Country: US (occurrence: US)
  Receive Date: 20140414
  Receipt Date: 20140414
  Transmission Date: 20141212
  Serious: Yes (Other)
  Sender: FDA-Public Use
  Company Number: US-ABBVIE-14P-163-1221927-00

PATIENT
  Sex: Male

DRUGS (3)
  1. HUMIRA [Suspect]
     Indication: PSORIASIS
     Dates: start: 2012
  2. LISINOPRIL [Concomitant]
     Indication: BLOOD PRESSURE
     Dates: end: 2014
  3. AMLODIPINE [Concomitant]
     Indication: BLOOD PRESSURE
     Dates: start: 2014

REACTIONS (11)
  - Proctalgia [Unknown]
  - Basal cell carcinoma [Unknown]
  - Haemorrhoids [Unknown]
  - Haemorrhage [Unknown]
  - Hepatitis C virus test positive [Unknown]
  - Renal impairment [Unknown]
  - Respiratory tract congestion [Recovering/Resolving]
  - Cough [Recovering/Resolving]
  - Wheezing [Recovering/Resolving]
  - Feeling abnormal [Recovering/Resolving]
  - Pneumonia [Recovering/Resolving]
